FAERS Safety Report 6976553-6 (Version None)
Quarter: 2010Q3

REPORT INFORMATION
  Report Type: 
  Country: None (occurrence: None)
  Receive Date: 20100910
  Receipt Date: 20100901
  Transmission Date: 20110219
  Serious: Yes (Other)
  Sender: FDA-Public Use
  Company Number: ES-AMGEN-QUU414316

PATIENT
  Sex: Male
  Weight: 75 kg

DRUGS (2)
  1. VECTIBIX [Suspect]
     Indication: COLORECTAL CANCER
     Route: 042
     Dates: start: 20100422, end: 20100501
  2. ZOLADEX [Concomitant]
     Route: 058
     Dates: start: 20060101

REACTIONS (1)
  - FACE OEDEMA [None]
